FAERS Safety Report 9999827 (Version 2)
Quarter: 2014Q1

REPORT INFORMATION
  Report Type: Spontaneous
  Country: US (occurrence: US)
  Receive Date: 20140312
  Receipt Date: 20140312
  Transmission Date: 20141002
  Serious: No
  Sender: FDA-Public Use
  Company Number: US-GILEAD-2012-0056772

PATIENT
  Sex: Male

DRUGS (4)
  1. LETAIRIS [Suspect]
     Indication: PULMONARY HYPERTENSION
     Dosage: 10 MG, UNK
     Route: 048
     Dates: start: 20111129
  2. LETAIRIS [Suspect]
     Indication: OEDEMA
  3. FLOLAN [Suspect]
  4. EPOPROSTENOL [Concomitant]

REACTIONS (5)
  - Pain in jaw [Unknown]
  - Pain [Unknown]
  - Headache [Unknown]
  - Flushing [Unknown]
  - Oedema peripheral [Unknown]
